FAERS Safety Report 11088120 (Version 1)
Quarter: 2015Q2

REPORT INFORMATION
  Report Type: Spontaneous
  Country: US (occurrence: None)
  Receive Date: 20150501
  Receipt Date: 20150501
  Transmission Date: 20150821
  Serious: No
  Sender: FDA-Public Use
  Company Number: None

PATIENT
  Age: 10 Year
  Sex: Male
  Weight: 31.75 kg

DRUGS (2)
  1. CONCERTA [Suspect]
     Active Substance: METHYLPHENIDATE HYDROCHLORIDE
     Indication: ATTENTION DEFICIT/HYPERACTIVITY DISORDER
     Dosage: 18 MG, ONCE DAILY, TAKEN BY MOUTH
     Route: 048
     Dates: start: 20150320, end: 20150430
  2. CONCERTA [Suspect]
     Active Substance: METHYLPHENIDATE HYDROCHLORIDE
     Indication: ATTENTION DEFICIT/HYPERACTIVITY DISORDER
     Dosage: 27 MG, ONCE DAILY, TAKEN BY MOUTH
     Route: 048
     Dates: start: 20150320, end: 20150430

REACTIONS (7)
  - Tic [None]
  - Drug ineffective [None]
  - Disturbance in attention [None]
  - Product quality issue [None]
  - Educational problem [None]
  - Product formulation issue [None]
  - Product substitution issue [None]

NARRATIVE: CASE EVENT DATE: 20150320
